FAERS Safety Report 5104713-8 (Version None)
Quarter: 2006Q3

REPORT INFORMATION
  Report Type: 
  Country: None (occurrence: None)
  Receive Date: 20060731
  Receipt Date: 20050824
  Transmission Date: 20061208
  Serious: Yes (Hospitalization, Other)
  Sender: FDA-Public Use
  Company Number: US-JNJFOC-20050601931

PATIENT
  Age: 92 Year
  Sex: Female

DRUGS (6)
  1. RISPERDAL [Suspect]
     Indication: PARANOIA
     Dosage: 0.25 MG , IN 1 DAY
  2. ARICEPT [Concomitant]
  3. CARDIA () CARDIAC THERAPY [Concomitant]
  4. ASPIRIN [Concomitant]
  5. LEVOXYL [Concomitant]
  6. ESCITALOPRAM OXALATE (SSRI) [Concomitant]

REACTIONS (1)
  - CEREBROVASCULAR ACCIDENT [None]
